FAERS Safety Report 5886818-7 (Version None)
Quarter: 2008Q3

REPORT INFORMATION
  Report Type: 
  Country: None (occurrence: None)
  Receive Date: 20080917
  Receipt Date: 20080910
  Transmission Date: 20090109
  Serious: Yes (Death, Hospitalization, Other)
  Sender: FDA-Public Use
  Company Number: US-BAXTER-2008BH000756

PATIENT
  Age: 70 Year
  Sex: Male
  Weight: 74 kg

DRUGS (2)
  1. HEPARIN SODIUM INJECTION [Suspect]
     Indication: PROPHYLAXIS
     Dosage: DOSE UNIT:UNKNOWN
     Route: 033
     Dates: start: 20071101, end: 20080101
  2. HEPARIN SODIUM INJECTION [Suspect]
     Dosage: DOSE UNIT:UNKNOWN
     Route: 033
     Dates: start: 20080101, end: 20080201

REACTIONS (18)
  - ABDOMINAL PAIN [None]
  - ASTHENIA [None]
  - BLISTER [None]
  - BLOOD PRESSURE DECREASED [None]
  - DEATH [None]
  - DIARRHOEA [None]
  - DIZZINESS [None]
  - DYSKINESIA [None]
  - FALL [None]
  - HYPERHIDROSIS [None]
  - NAUSEA [None]
  - NERVE INJURY [None]
  - PAIN IN EXTREMITY [None]
  - PERITONITIS [None]
  - PRURITUS [None]
  - PULSE ABSENT [None]
  - RETCHING [None]
  - VOMITING [None]
